FAERS Safety Report 19616308 (Version 1)
Quarter: 2021Q3

REPORT INFORMATION
  Report Type: Spontaneous
  Country: US (occurrence: US)
  Receive Date: 20210727
  Receipt Date: 20210727
  Transmission Date: 20211014
  Serious: No
  Sender: FDA-Public Use
  Company Number: US-ABBVIE-21K-163-3874309-00

PATIENT
  Sex: Female
  Weight: 90.72 kg

DRUGS (4)
  1. CYTOMEL [Suspect]
     Active Substance: LIOTHYRONINE SODIUM
     Indication: PRODUCT USED FOR UNKNOWN INDICATION
     Route: 065
     Dates: start: 2003
  2. SYNTHROID [Suspect]
     Active Substance: LEVOTHYROXINE SODIUM
     Indication: PRODUCT USED FOR UNKNOWN INDICATION
     Route: 065
  3. LIOTHYRONIN [Suspect]
     Active Substance: LIOTHYRONINE SODIUM
     Indication: AUTOIMMUNE THYROIDITIS
     Dosage: 25 MCG ONE TABLET IN THE MORNING AND 25 MCG ONE TABLET IN THE AFTERNOON
     Route: 048
     Dates: start: 2019, end: 2020
  4. CYTOMEL [Suspect]
     Active Substance: LIOTHYRONINE SODIUM
     Route: 065
     Dates: start: 202010

REACTIONS (13)
  - Arthralgia [Unknown]
  - Musculoskeletal disorder [Unknown]
  - Generalised oedema [Unknown]
  - Weight increased [Unknown]
  - Depressed mood [Unknown]
  - Tri-iodothyronine abnormal [Unknown]
  - Pain [Unknown]
  - Feeling abnormal [Unknown]
  - COVID-19 [Unknown]
  - Blood count abnormal [Unknown]
  - Adverse drug reaction [Unknown]
  - Hypoaesthesia [Unknown]
  - Drug ineffective [Unknown]

NARRATIVE: CASE EVENT DATE: 2020
